FAERS Safety Report 6050206-3 (Version None)
Quarter: 2009Q1

REPORT INFORMATION
  Report Type: 
  Country: None (occurrence: None)
  Receive Date: 20090126
  Receipt Date: 20090114
  Transmission Date: 20090719
  Serious: Yes (Other)
  Sender: FDA-Public Use
  Company Number: US-WYE-H06590208

PATIENT
  Sex: Female

DRUGS (2)
  1. EFFEXOR XR [Suspect]
     Indication: MYALGIA
     Dates: end: 20080501
  2. EFFEXOR XR [Suspect]
     Dosage: TAPERED OFF
     Dates: start: 20080501, end: 20080101

REACTIONS (16)
  - ANXIETY [None]
  - BURNING SENSATION [None]
  - DRUG WITHDRAWAL SYNDROME [None]
  - FATIGUE [None]
  - INSOMNIA [None]
  - NERVOUSNESS [None]
  - NEURODERMATITIS [None]
  - NONSPECIFIC REACTION [None]
  - PAIN [None]
  - PANIC ATTACK [None]
  - PRURITUS [None]
  - RASH VESICULAR [None]
  - RESTLESSNESS [None]
  - SCAR [None]
  - SKIN LESION [None]
  - UNEVALUABLE EVENT [None]
